FAERS Safety Report 12227414 (Version 3)
Quarter: 2016Q2

REPORT INFORMATION
  Report Type: Spontaneous
  Country: US (occurrence: US)
  Receive Date: 20160331
  Receipt Date: 20160420
  Transmission Date: 20160815
  Serious: Yes (Other)
  Sender: FDA-Public Use
  Company Number: US-LUNDBECK-DKLU2011695

PATIENT
  Age: 45 Year
  Sex: Female
  Weight: 92 kg

DRUGS (36)
  1. PLAQUENIL [Concomitant]
     Active Substance: HYDROXYCHLOROQUINE SULFATE
     Indication: UNDIFFERENTIATED CONNECTIVE TISSUE DISEASE
  2. LEVOTHYROXINE. [Concomitant]
     Active Substance: LEVOTHYROXINE
     Indication: PRODUCT USED FOR UNKNOWN INDICATION
     Route: 048
  3. TOPROL XL [Concomitant]
     Active Substance: METOPROLOL SUCCINATE
     Indication: AUTONOMIC NERVOUS SYSTEM IMBALANCE
     Route: 048
  4. VITAMIN B COMPLEX [Concomitant]
     Active Substance: CYANOCOBALAMIN\DEXPANTHENOL\NIACINAMIDE\PYRIDOXINE HYDROCHLORIDE\RIBOFLAVIN 5^-PHOSPHATE SODIUM\THIAMINE HYDROCHLORIDE\VITAMIN B COMPLEX
     Indication: PRODUCT USED FOR UNKNOWN INDICATION
     Route: 048
  5. FOLVITE [Concomitant]
     Active Substance: FOLIC ACID
     Indication: PRODUCT USED FOR UNKNOWN INDICATION
     Route: 065
  6. NORTHERA [Suspect]
     Active Substance: DROXIDOPA
     Route: 048
     Dates: start: 20160321, end: 20160323
  7. NORTHERA [Suspect]
     Active Substance: DROXIDOPA
     Route: 048
     Dates: start: 20160323
  8. TESSALON [Concomitant]
     Active Substance: BENZONATATE
     Indication: COUGH
     Route: 048
  9. DOMPERIDONE [Concomitant]
     Active Substance: DOMPERIDONE
     Indication: IMPAIRED GASTRIC EMPTYING
  10. IMPLANON [Concomitant]
     Active Substance: ETONOGESTREL
     Indication: PRODUCT USED FOR UNKNOWN INDICATION
     Route: 059
  11. CLARITIN [Concomitant]
     Active Substance: LORATADINE
     Indication: PRODUCT USED FOR UNKNOWN INDICATION
     Route: 048
  12. PRILOSEC [Concomitant]
     Active Substance: OMEPRAZOLE MAGNESIUM
     Indication: PRODUCT USED FOR UNKNOWN INDICATION
     Route: 048
  13. CYANOCOBALAMIN. [Concomitant]
     Active Substance: CYANOCOBALAMIN
     Indication: PRODUCT USED FOR UNKNOWN INDICATION
     Route: 060
  14. ANAPROX [Concomitant]
     Active Substance: NAPROXEN SODIUM
     Indication: PRODUCT USED FOR UNKNOWN INDICATION
     Route: 048
  15. PHENERGAN [Concomitant]
     Active Substance: PROMETHAZINE HYDROCHLORIDE
     Indication: NAUSEA
     Route: 048
  16. TOPAMAX [Concomitant]
     Active Substance: TOPIRAMATE
     Indication: PRODUCT USED FOR UNKNOWN INDICATION
     Route: 048
  17. NORTHERA [Suspect]
     Active Substance: DROXIDOPA
     Indication: ORTHOSTATIC HYPOTENSION
     Route: 048
     Dates: start: 20160318, end: 20160321
  18. NORTHERA [Suspect]
     Active Substance: DROXIDOPA
     Route: 048
     Dates: start: 20160323, end: 20160323
  19. FLORINEF ACETATE [Concomitant]
     Active Substance: FLUDROCORTISONE ACETATE
     Indication: AUTONOMIC NERVOUS SYSTEM IMBALANCE
     Route: 065
  20. PLAQUENIL [Concomitant]
     Active Substance: HYDROXYCHLOROQUINE SULFATE
     Indication: RHEUMATOID ARTHRITIS
     Route: 048
  21. LEVOTHYROXINE. [Concomitant]
     Active Substance: LEVOTHYROXINE
     Route: 048
  22. KLOR-CON M20 [Concomitant]
     Active Substance: POTASSIUM CHLORIDE
     Indication: PRODUCT USED FOR UNKNOWN INDICATION
     Route: 048
  23. POLYETHYLENE GLYCOL [Concomitant]
     Active Substance: POLYETHYLENE GLYCOLS
     Indication: PRODUCT USED FOR UNKNOWN INDICATION
     Route: 048
  24. SODIUM CHLORIDE. [Concomitant]
     Active Substance: SODIUM CHLORIDE
     Indication: AUTONOMIC NERVOUS SYSTEM IMBALANCE
     Route: 048
  25. XELJANZ [Concomitant]
     Active Substance: TOFACITINIB CITRATE
     Indication: UNDIFFERENTIATED CONNECTIVE TISSUE DISEASE
  26. OTREXUP [Concomitant]
     Active Substance: METHOTREXATE
     Indication: UNDIFFERENTIATED CONNECTIVE TISSUE DISEASE
  27. DOMPERIDONE [Concomitant]
     Active Substance: DOMPERIDONE
     Indication: CONSTIPATION
     Dates: end: 20160323
  28. DOMPERIDONE [Concomitant]
     Active Substance: DOMPERIDONE
     Indication: AUTONOMIC NERVOUS SYSTEM IMBALANCE
  29. VITAMIN D2 [Concomitant]
     Active Substance: ERGOCALCIFEROL
     Indication: PRODUCT USED FOR UNKNOWN INDICATION
     Route: 048
  30. NEURONTIN [Concomitant]
     Active Substance: GABAPENTIN
     Indication: PRODUCT USED FOR UNKNOWN INDICATION
     Route: 048
  31. XELJANZ [Concomitant]
     Active Substance: TOFACITINIB CITRATE
     Indication: RHEUMATOID ARTHRITIS
     Route: 065
  32. OTREXUP [Concomitant]
     Active Substance: METHOTREXATE
     Indication: RHEUMATOID ARTHRITIS
     Route: 058
  33. PARLODEL [Concomitant]
     Active Substance: BROMOCRIPTINE MESYLATE
     Indication: PRODUCT USED FOR UNKNOWN INDICATION
     Route: 048
  34. FLEXERIL [Concomitant]
     Active Substance: CYCLOBENZAPRINE HYDROCHLORIDE
     Indication: MUSCLE SPASMS
     Route: 048
  35. ROBITUSSIN (GUAIFENESIN) [Concomitant]
     Active Substance: GUAIFENESIN
     Indication: COUGH
     Route: 048
  36. VITAMIN E [Concomitant]
     Active Substance: .ALPHA.-TOCOPHEROL
     Indication: PRODUCT USED FOR UNKNOWN INDICATION
     Route: 048

REACTIONS (9)
  - Impaired gastric emptying [Not Recovered/Not Resolved]
  - Dyspnoea [Unknown]
  - Headache [Recovering/Resolving]
  - Diarrhoea [Unknown]
  - Blood pressure increased [Recovering/Resolving]
  - Feeling hot [Recovering/Resolving]
  - Painful respiration [Unknown]
  - Arrhythmia [Recovered/Resolved]
  - Abdominal pain [Recovering/Resolving]

NARRATIVE: CASE EVENT DATE: 20160323
